FAERS Safety Report 9252367 (Version 1)
Quarter: 2013Q1

REPORT INFORMATION
  Report Type: Spontaneous
  Country: US (occurrence: None)
  Receive Date: 20130305
  Receipt Date: 20130305
  Transmission Date: 20140127
  Serious: Yes (Hospitalization)
  Sender: FDA-Public Use
  Company Number: 163-21880-12092513

PATIENT
  Age: 75 Year
  Sex: Female
  Weight: 68.95 kg

DRUGS (17)
  1. REVLIMID (LENALIDOMIDE) (25 MILLIGRAM, CAPSULES) [Suspect]
     Indication: PLASMA CELL MYELOMA
     Dosage: 25MG, 21 IN 21 D, PO
     Route: 048
     Dates: start: 20120827, end: 20120911
  2. ALLOPURINOL [Concomitant]
  3. AMLODIPINE (AMLODIPINE) [Concomitant]
  4. PRAVASTATIN (PRAVASTATIN) [Concomitant]
  5. LEVOTHYROXINE (LEXOTHYROXINE) [Concomitant]
  6. KLOR-CON (POTASSIUM CHLORIDE) [Concomitant]
  7. LOSARTAN (LOSARTAN) [Concomitant]
  8. ATENOLOL (ATENOLOL) [Concomitant]
  9. B12 (CYANOCOBALAMIN) [Concomitant]
  10. ZYRTEC (CETIRIZINE HYDROCHLORIDE) [Concomitant]
  11. GINGER ROOT (GINGER) [Concomitant]
  12. PAPAYA ENZYME (PAPAIN) [Concomitant]
  13. FAMVIR (FAMCICLOVIR) [Concomitant]
  14. TIZANIDINE (TIZANIDINE) [Concomitant]
  15. RESTASIS (CICLOSPORINE) [Concomitant]
  16. AREDIA (PAMIDRONATE DISODIUM) [Concomitant]
  17. PREDNISONE (PREDNSIONE) [Concomitant]

REACTIONS (3)
  - Pruritus [None]
  - Erythema [None]
  - Local swelling [None]
